FAERS Safety Report 13886595 (Version 1)
Quarter: 2017Q3

REPORT INFORMATION
  Report Type: Spontaneous
  Country: US (occurrence: US)
  Receive Date: 20170821
  Receipt Date: 20170821
  Transmission Date: 20171127
  Serious: No
  Sender: FDA-Public Use
  Company Number: US-ALLERGAN-1700022US

PATIENT
  Sex: Male

DRUGS (1)
  1. ANDRODERM [Suspect]
     Active Substance: TESTOSTERONE
     Indication: HORMONE REPLACEMENT THERAPY
     Dosage: UNK
     Route: 062
     Dates: start: 20141020, end: 20141027

REACTIONS (6)
  - Economic problem [Unknown]
  - Fear [Unknown]
  - Physical disability [Unknown]
  - Anhedonia [Unknown]
  - Emotional distress [Unknown]
  - Injury [Unknown]

NARRATIVE: CASE EVENT DATE: 20141027
